FAERS Safety Report 6142274-5 (Version None)
Quarter: 2009Q2

REPORT INFORMATION
  Report Type: 
  Country: None (occurrence: None)
  Receive Date: 20090401
  Receipt Date: 20090401
  Transmission Date: 20091009
  Serious: Yes (Other)
  Sender: FDA-Public Use
  Company Number: None

PATIENT
  Age: 43 Year
  Sex: Male

DRUGS (1)
  1. XYLOMETAZOLINE HYDROCHLORIDE (NCH) (XYLOMETAZOLINE HYDROCHLORIDE) NASA [Suspect]
     Dosage: NASAL
     Route: 045

REACTIONS (5)
  - CHORIORETINOPATHY [None]
  - MACULAR DEGENERATION [None]
  - METAMORPHOPSIA [None]
  - SCOTOMA [None]
  - VISION BLURRED [None]
